FAERS Safety Report 6543664-9 (Version None)
Quarter: 2010Q1

REPORT INFORMATION
  Report Type: 
  Country: None (occurrence: None)
  Receive Date: 20100120
  Receipt Date: 20100114
  Transmission Date: 20100710
  Serious: Yes (Other)
  Sender: FDA-Public Use
  Company Number: JP-B.I. PHARMACEUTICALS,INC./RIDGEFIELD-2010-BP-00149NB

PATIENT
  Age: 49 Year
  Sex: Female

DRUGS (10)
  1. MICARDIS [Suspect]
     Dosage: 40 MG
     Route: 048
     Dates: start: 20091211, end: 20100105
  2. PIMOBENDAN [Concomitant]
     Dosage: 5 MG
     Route: 048
  3. DIART [Concomitant]
     Dosage: 30 MG
     Route: 048
  4. ONON [Concomitant]
     Route: 048
  5. KREMEZIN [Concomitant]
     Dosage: 18 G
     Route: 048
  6. MERISLON [Concomitant]
     Dosage: 56 MG
     Route: 048
  7. BIOFERMIN [Concomitant]
     Dosage: 9 G
     Route: 065
  8. FERROMIA [Concomitant]
     Dosage: 50 MG
     Route: 065
  9. KINEDAK [Concomitant]
     Dosage: 450 MG
     Route: 065
  10. HOKUNALIN:TAPE [Concomitant]
     Dosage: 2 MG
     Route: 065

REACTIONS (2)
  - HYPOGLYCAEMIA [None]
  - RENAL IMPAIRMENT [None]
